FAERS Safety Report 5400254-9 (Version None)
Quarter: 2007Q3

REPORT INFORMATION
  Report Type: 
  Country: None (occurrence: None)
  Receive Date: 20070727
  Receipt Date: 20070727
  Transmission Date: 20080115
  Serious: Yes (Disabling)
  Sender: FDA-Public Use
  Company Number: None

PATIENT
  Age: 51 Year
  Sex: Female

DRUGS (1)
  1. MORPHINE [Suspect]
     Indication: RENAL PAIN
     Dosage: 8 MG ONE TIME IV BOLUS FIRST DOSE - MINUTES
     Route: 040

REACTIONS (3)
  - ABDOMINAL PAIN [None]
  - ABDOMINAL PAIN UPPER [None]
  - MUSCLE SPASMS [None]
